FAERS Safety Report 4882197-2 (Version None)
Quarter: 2006Q1

REPORT INFORMATION
  Report Type: 
  Country: None (occurrence: None)
  Receive Date: 20060117
  Receipt Date: 20051208
  Transmission Date: 20060701
  Serious: Yes (Hospitalization, Other)
  Sender: FDA-Public Use
  Company Number: US-MERCK-0512USA01565

PATIENT
  Age: 55 Year
  Sex: Male
  Weight: 84 kg

DRUGS (6)
  1. VIOXX [Suspect]
     Indication: PROCEDURAL PAIN
     Route: 048
     Dates: start: 19970101, end: 20030101
  2. LIPITOR [Concomitant]
     Route: 065
  3. DARVOCET-N 50 [Concomitant]
     Route: 065
  4. IBUPROFEN [Concomitant]
     Route: 065
  5. CELEBREX [Concomitant]
     Route: 065
  6. [THERAPY UNSPECIFIED] [Concomitant]
     Route: 065

REACTIONS (4)
  - ANGINA PECTORIS [None]
  - ANXIETY [None]
  - MYOCARDIAL INFARCTION [None]
  - ROTATOR CUFF SYNDROME [None]
